FAERS Safety Report 10165450 (Version 1)
Quarter: 2014Q2

REPORT INFORMATION
  Report Type: Spontaneous
  Country: US (occurrence: US)
  Receive Date: 20140510
  Receipt Date: 20140510
  Transmission Date: 20141212
  Serious: No
  Sender: FDA-Public Use
  Company Number: US-BRISTOL-MYERS SQUIBB COMPANY-20468542

PATIENT
  Sex: Male

DRUGS (1)
  1. BYDUREON [Suspect]
     Indication: TYPE 2 DIABETES MELLITUS
     Dates: start: 20140301

REACTIONS (3)
  - Headache [Unknown]
  - Blood glucose increased [Recovering/Resolving]
  - Dizziness [Recovered/Resolved]
